FAERS Safety Report 7581733-5 (Version None)
Quarter: 2011Q2

REPORT INFORMATION
  Report Type: 
  Country: None (occurrence: None)
  Receive Date: 20110629
  Receipt Date: 20110620
  Transmission Date: 20111010
  Serious: Yes (Other)
  Sender: FDA-Public Use
  Company Number: US-ASTRAZENECA-2011SE04683

PATIENT
  Age: 59 Year
  Sex: Female
  Weight: 95.3 kg

DRUGS (16)
  1. SEROQUEL [Suspect]
     Route: 048
     Dates: end: 20080101
  2. NEURONTIN [Concomitant]
     Route: 048
  3. NEXIUM [Suspect]
     Indication: ULCER
     Route: 048
     Dates: start: 20100601, end: 20101001
  4. SEROQUEL [Suspect]
     Indication: BIPOLAR I DISORDER
     Route: 048
  5. NAPROXEN [Concomitant]
     Indication: PAIN
     Route: 048
  6. SINGULAIR [Concomitant]
     Route: 055
  7. SKELAXIN [Concomitant]
     Route: 048
  8. BENADRYL [Concomitant]
     Indication: HYPERSENSITIVITY
     Route: 048
  9. NEXIUM [Suspect]
     Dosage: GENERIC
     Route: 048
  10. SEROQUEL [Suspect]
     Route: 048
  11. ZETIA [Concomitant]
     Indication: BLOOD CHOLESTEROL
     Route: 048
  12. EFFEXOR [Concomitant]
     Indication: DEPRESSION
     Route: 048
  13. MS CONTIN [Concomitant]
     Indication: PAIN
     Route: 048
  14. SAVELLA [Concomitant]
     Route: 048
  15. METFORMIN HCL [Concomitant]
     Indication: DIABETES MELLITUS
     Route: 048
  16. DEPAKOTE [Concomitant]
     Route: 048

REACTIONS (9)
  - DRUG HYPERSENSITIVITY [None]
  - ADVERSE EVENT [None]
  - GLAUCOMA [None]
  - DIABETES MELLITUS [None]
  - BLOOD CHOLESTEROL INCREASED [None]
  - VOMITING [None]
  - CATARACT [None]
  - GASTRIC DISORDER [None]
  - DRUG DOSE OMISSION [None]
